FAERS Safety Report 22188213 (Version 1)
Quarter: 2023Q2

REPORT INFORMATION
  Report Type: Spontaneous
  Country: PT (occurrence: PT)
  Receive Date: 20230408
  Receipt Date: 20230408
  Transmission Date: 20230721
  Serious: Yes (Other)
  Sender: FDA-Public Use
  Company Number: None

PATIENT
  Age: 35 Year
  Sex: Male

DRUGS (2)
  1. SULFAMETHOXAZOLE\TRIMETHOPRIM [Suspect]
     Active Substance: SULFAMETHOXAZOLE\TRIMETHOPRIM
     Indication: Pneumocystis jirovecii pneumonia
     Dosage: 2+3+2 COMP. PER DAY?FOR ACTIVE INGREDIENT TRIMETOPRIM THE STRENGTH IS 160 MILLIGRAM .?FOR ACTIVE ING
     Route: 065
     Dates: start: 20220420, end: 20220505
  2. SULFAMETHOXAZOLE\TRIMETHOPRIM [Suspect]
     Active Substance: SULFAMETHOXAZOLE\TRIMETHOPRIM
     Dosage: 2+3+2 COMP. PER DAY?FOR ACTIVE INGREDIENT TRIMETOPRIM THE STRENGTH IS 160 MILLIGRAM .?FOR ACTIVE ING
     Route: 065
     Dates: start: 20220420, end: 20220505

REACTIONS (2)
  - Drug-induced liver injury [Recovered/Resolved]
  - Vomiting [Recovered/Resolved]

NARRATIVE: CASE EVENT DATE: 20220505
